FAERS Safety Report 5732537-7 (Version None)
Quarter: 2008Q2

REPORT INFORMATION
  Report Type: 
  Country: None (occurrence: None)
  Receive Date: 20080508
  Receipt Date: 20080430
  Transmission Date: 20081010
  Serious: Yes (Hospitalization)
  Sender: FDA-Public Use
  Company Number: FR-GILEAD-2008-0016304

PATIENT
  Age: 19 Year
  Sex: Male

DRUGS (4)
  1. VISTIDE [Suspect]
     Indication: ADENOVIRUS INFECTION
     Route: 042
     Dates: start: 20071130
  2. NOXAFIL [Suspect]
     Route: 048
     Dates: start: 20071107
  3. NEUPOGEN [Suspect]
     Indication: PANCYTOPENIA
     Route: 058
     Dates: start: 20071026
  4. DESFERAL [Suspect]
     Indication: HAEMOCHROMATOSIS
     Route: 042
     Dates: start: 20071204, end: 20071210

REACTIONS (1)
  - PULMONARY HYPERTENSION [None]
